FAERS Safety Report 7537481-0 (Version None)
Quarter: 2011Q2

REPORT INFORMATION
  Report Type: 
  Country: None (occurrence: None)
  Receive Date: 20110609
  Receipt Date: 20110601
  Transmission Date: 20111010
  Serious: Yes (Other)
  Sender: FDA-Public Use
  Company Number: PHHO2011FR09631

PATIENT
  Sex: Female
  Weight: 72 kg

DRUGS (5)
  1. VALGANCICLOVIR [Suspect]
  2. NEORAL [Suspect]
     Indication: RENAL TRANSPLANT
     Dosage: 160 MG, BID
     Route: 048
     Dates: start: 20110308
  3. SULFAMETHOXAZOLE [Suspect]
  4. PREDNISOLONE [Concomitant]
     Indication: RENAL TRANSPLANT
     Dosage: 10 MG
     Route: 048
     Dates: start: 20110308
  5. MYCOPHENOLIC ACID [Suspect]
     Indication: RENAL TRANSPLANT
     Dosage: 720 MG, BID
     Route: 048
     Dates: start: 20110308, end: 20110527

REACTIONS (1)
  - AGRANULOCYTOSIS [None]
